FAERS Safety Report 9771346 (Version 1)
Quarter: 2013Q4

REPORT INFORMATION
  Report Type: Report from Study
  Country: BR (occurrence: BR)
  Receive Date: 20131218
  Receipt Date: 20131218
  Transmission Date: 20140711
  Serious: Yes (Death, Hospitalization)
  Sender: FDA-Public Use
  Company Number: PHHY2013BR148055

PATIENT
  Sex: Female
  Weight: 39 kg

DRUGS (2)
  1. ACLASTA [Suspect]
     Indication: OSTEOPOROSIS
     Dosage: 5 MG, UNK
     Route: 042
     Dates: start: 2009
  2. ACLASTA [Suspect]
     Dosage: 5 MG, UNK
     Route: 042
     Dates: start: 2012

REACTIONS (6)
  - Death [Fatal]
  - Haemorrhage [Unknown]
  - Skin discolouration [Unknown]
  - Syncope [Unknown]
  - Fall [Unknown]
  - Abdominal pain upper [Unknown]
